FAERS Safety Report 9373548 (Version 2)
Quarter: 2013Q3

REPORT INFORMATION
  Report Type: Spontaneous
  Country: IT (occurrence: IT)
  Receive Date: 20130627
  Receipt Date: 20130802
  Transmission Date: 20140515
  Serious: Yes (Life-Threatening, Hospitalization)
  Sender: FDA-Public Use
  Company Number: IT-ASTRAZENECA-2013SE48237

PATIENT
  Age: 12736 Day
  Sex: Female

DRUGS (4)
  1. SEROQUEL [Suspect]
     Indication: INTENTIONAL OVERDOSE
     Dosage: 50 TABLET, ONCE/SINGLE ADMINISTARTION
     Route: 048
     Dates: start: 20130522, end: 20130522
  2. SANDOSTATINA [Concomitant]
     Dosage: 20 MG/2.5 ML POWDER AND SOLVENT FOR INJECTION SOLUTION, 1DF
     Route: 030
  3. RIVOTRIL [Concomitant]
     Route: 048
  4. DOSTINEX [Concomitant]
     Route: 048

REACTIONS (3)
  - Intentional overdose [Recovered/Resolved]
  - Drug abuse [Recovering/Resolving]
  - Coma [Recovering/Resolving]
